FAERS Safety Report 9261093 (Version 2)
Quarter: 2013Q2

REPORT INFORMATION
  Report Type: Spontaneous
  Country: FR (occurrence: FR)
  Receive Date: 20130429
  Receipt Date: 20130524
  Transmission Date: 20140414
  Serious: Yes (Hospitalization, Other)
  Sender: FDA-Public Use
  Company Number: FR-JNJFOC-20130411402

PATIENT
  Sex: Female

DRUGS (5)
  1. XEPLION [Suspect]
     Indication: SCHIZOPHRENIA, PARANOID TYPE
     Route: 030
     Dates: start: 20130327, end: 20130327
  2. XEPLION [Suspect]
     Indication: SCHIZOPHRENIA, PARANOID TYPE
     Route: 030
     Dates: start: 20130227, end: 20130227
  3. XEPLION [Suspect]
     Indication: SCHIZOPHRENIA, PARANOID TYPE
     Route: 030
     Dates: start: 20130130, end: 20130130
  4. ALPRAZOLAM [Concomitant]
     Indication: ANXIETY
     Route: 048
     Dates: start: 20120604
  5. UVEDOSE [Concomitant]
     Dosage: 2.5MG PER 2ML
     Route: 048
     Dates: start: 20120305

REACTIONS (9)
  - Hypoaesthesia [Recovering/Resolving]
  - Dizziness [Unknown]
  - Abdominal pain [Recovering/Resolving]
  - Amenorrhoea [Unknown]
  - Hunger [Recovering/Resolving]
  - Dyskinesia [Unknown]
  - Visual field defect [Recovering/Resolving]
  - Gait disturbance [Unknown]
  - Vertigo [Recovering/Resolving]
